FAERS Safety Report 5143276-8 (Version None)
Quarter: 2006Q4

REPORT INFORMATION
  Report Type: 
  Country: None (occurrence: None)
  Receive Date: 20061103
  Receipt Date: 20060906
  Transmission Date: 20070319
  Serious: Yes (Death, Life-Threatening)
  Sender: FDA-Public Use
  Company Number: IT-ROCHE-461959

PATIENT
  Age: 64 Year
  Sex: Female

DRUGS (7)
  1. MYCOPHENOLATE MOFETIL [Suspect]
     Route: 048
     Dates: start: 20060613
  2. TACROLIMUS [Suspect]
     Route: 048
     Dates: start: 20060613, end: 20060701
  3. TACROLIMUS [Suspect]
     Route: 048
     Dates: start: 20060702, end: 20060702
  4. TACROLIMUS [Suspect]
     Route: 048
     Dates: start: 20060706, end: 20060710
  5. TACROLIMUS [Suspect]
     Route: 048
     Dates: start: 20060712, end: 20060712
  6. TACROLIMUS [Suspect]
     Route: 048
     Dates: start: 20060714, end: 20060726
  7. TACROLIMUS [Suspect]
     Route: 048
     Dates: start: 20060727, end: 20060727

REACTIONS (2)
  - MULTI-ORGAN FAILURE [None]
  - PERITONITIS [None]
